FAERS Safety Report 16638818 (Version 2)
Quarter: 2019Q3

REPORT INFORMATION
  Report Type: Spontaneous
  Country: RO (occurrence: RO)
  Receive Date: 20190726
  Receipt Date: 20190809
  Transmission Date: 20191004
  Serious: Yes (Hospitalization, Other)
  Sender: FDA-Public Use
  Company Number: RO-PFIZER INC-2019314776

PATIENT
  Age: 68 Year
  Sex: Female

DRUGS (6)
  1. AMLODIPINE BESILATE [Suspect]
     Active Substance: AMLODIPINE BESYLATE
     Dosage: 10 MG, DAILY
     Route: 065
  2. ACETYLSALICYLIC ACID [Suspect]
     Active Substance: ASPIRIN
     Dosage: 100 MG, DAILY
     Route: 065
  3. ATORVASTATIN CALCIUM. [Suspect]
     Active Substance: ATORVASTATIN CALCIUM
     Dosage: 20 MG, IN THE EVENING
     Route: 065
  4. PERINDOPRIL [Suspect]
     Active Substance: PERINDOPRIL
     Dosage: 10 MG, DAILY
     Route: 065
  5. METFORMIN [Suspect]
     Active Substance: METFORMIN HYDROCHLORIDE
     Dosage: 500 MG, 2X/DAY
     Route: 065
  6. LANTUS [Suspect]
     Active Substance: INSULIN GLARGINE
     Dosage: 16 IU, AT 10 P.M.
     Route: 065

REACTIONS (10)
  - Normochromic normocytic anaemia [Recovering/Resolving]
  - Metabolic acidosis [Recovering/Resolving]
  - Pyelonephritis acute [Recovering/Resolving]
  - Renal abscess [Recovering/Resolving]
  - Acute kidney injury [Recovering/Resolving]
  - Diabetic nephropathy [Unknown]
  - Hyperkalaemia [Recovering/Resolving]
  - Diabetic retinopathy [Unknown]
  - Hypertensive heart disease [Unknown]
  - Hyponatraemia [Recovering/Resolving]
